FAERS Safety Report 16625248 (Version 7)
Quarter: 2020Q4

REPORT INFORMATION
  Report Type: Spontaneous
  Country: US (occurrence: US)
  Receive Date: 20190724
  Receipt Date: 20201123
  Transmission Date: 20210113
  Serious: Yes (Other)
  Sender: FDA-Public Use
  Company Number: US-PFIZER INC-2019314779

PATIENT
  Age: 79 Year
  Sex: Female

DRUGS (1)
  1. XELJANZ XR [Suspect]
     Active Substance: TOFACITINIB CITRATE
     Dosage: 11 MG

REACTIONS (10)
  - Dementia [Unknown]
  - Pain [Not Recovered/Not Resolved]
  - Ear disorder [Unknown]
  - Deafness bilateral [Unknown]
  - Gastric disorder [Not Recovered/Not Resolved]
  - Amnesia [Unknown]
  - Hypoacusis [Unknown]
  - Headache [Not Recovered/Not Resolved]
  - Hyperplasia [Unknown]
  - Asthenia [Unknown]
